FAERS Safety Report 23192420 (Version 1)
Quarter: 2023Q4

REPORT INFORMATION
  Report Type: Spontaneous
  Country: PR (occurrence: PR)
  Receive Date: 20231116
  Receipt Date: 20231116
  Transmission Date: 20240110
  Serious: Yes (Other)
  Sender: FDA-Public Use
  Company Number: PR-ABBVIE-5496377

PATIENT
  Age: 72 Year
  Sex: Male
  Weight: 99 kg

DRUGS (1)
  1. VENCLEXTA [Suspect]
     Active Substance: VENETOCLAX
     Indication: Chronic lymphocytic leukaemia
     Route: 048
     Dates: start: 20230103

REACTIONS (8)
  - Macular degeneration [Unknown]
  - Vitreous degeneration [Unknown]
  - Pterygium [Unknown]
  - Conjunctivitis allergic [Unknown]
  - Dry eye [Unknown]
  - Cystoid macular oedema [Unknown]
  - Pinguecula [Unknown]
  - Eye irritation [Unknown]

NARRATIVE: CASE EVENT DATE: 20231002
